FAERS Safety Report 10251851 (Version 1)
Quarter: 2014Q2

REPORT INFORMATION
  Report Type: Spontaneous
  Country: US (occurrence: US)
  Receive Date: 20140623
  Receipt Date: 20140623
  Transmission Date: 20141212
  Serious: No
  Sender: FDA-Public Use
  Company Number: US-SHIRE-US201403207

PATIENT
  Age: 61 Year
  Sex: Female
  Weight: 65.76 kg

DRUGS (4)
  1. FOSRENOL [Suspect]
     Indication: HYPERPHOSPHATAEMIA
     Dosage: 2000 MG(FOUR OF 500 MG TABLETS), 3X/DAY:TID(WITH EACH MEAL)
     Route: 048
     Dates: start: 201402
  2. FOSRENOL [Suspect]
     Indication: DIALYSIS
  3. BENICAR [Concomitant]
     Indication: HYPERTENSION
     Dosage: 10 MG, 2X/DAY:BID (ONE IN AM AND ONE IN PM)
     Route: 048
     Dates: start: 201402
  4. RENVELA [Concomitant]
     Indication: DIALYSIS
     Dosage: 800 MG, 1X/DAY:QD
     Route: 048
     Dates: start: 201402

REACTIONS (5)
  - Sticky skin [Not Recovered/Not Resolved]
  - Skin exfoliation [Not Recovered/Not Resolved]
  - Visual acuity reduced [Not Recovered/Not Resolved]
  - Fatigue [Not Recovered/Not Resolved]
  - Diarrhoea [Not Recovered/Not Resolved]
